FAERS Safety Report 4657816-6 (Version None)
Quarter: 2005Q2

REPORT INFORMATION
  Report Type: 
  Country: None (occurrence: None)
  Receive Date: 20050510
  Receipt Date: 20041220
  Transmission Date: 20051028
  Serious: Yes (Death, Other)
  Sender: FDA-Public Use
  Company Number: US-MERCK-0412USA02602

PATIENT
  Age: 68 Year
  Sex: Male
  Weight: 105 kg

DRUGS (21)
  1. VIOXX [Suspect]
     Indication: ARTHRITIS
     Route: 048
     Dates: start: 20001026, end: 20001228
  2. VIOXX [Suspect]
     Route: 048
     Dates: start: 20001228, end: 20020226
  3. VIOXX [Suspect]
     Route: 048
     Dates: start: 20020226, end: 20031223
  4. CLINDAMYCIN [Concomitant]
     Route: 065
  5. LAMISIL [Concomitant]
     Route: 065
  6. NAPROXEN [Concomitant]
     Route: 065
     Dates: start: 19981001, end: 20001001
  7. HYDROCODONE HYDROCHLORIDE [Concomitant]
     Route: 065
  8. CEPHALEXIN [Concomitant]
     Route: 065
  9. CYCLOBENZAPRINE HYDROCHLORIDE [Concomitant]
     Route: 065
  10. ACETAMINOPHEN AND PROPOXYPHENE NAPSYLATE [Concomitant]
     Route: 065
  11. PENICILLIN (UNSPECIFIED) [Concomitant]
     Route: 065
  12. PRILOSEC [Concomitant]
     Route: 065
  13. RANITIDINE [Concomitant]
     Route: 065
  14. PROTONIX [Concomitant]
     Route: 065
  15. AMOXICILLIN [Concomitant]
     Route: 065
  16. DIOVAN [Concomitant]
     Route: 065
  17. AMITRIPTYLINE HYDROCHLORIDE [Concomitant]
     Route: 065
  18. AMMONIUM LACTATE [Concomitant]
     Route: 065
  19. DIDRONEL [Concomitant]
     Route: 065
  20. INDOMETHACIN [Concomitant]
     Route: 065
  21. RELAFEN [Concomitant]
     Route: 065

REACTIONS (19)
  - ARTERIOSCLEROSIS [None]
  - BENIGN PROSTATIC HYPERPLASIA [None]
  - BLISTER [None]
  - CARDIAC ARREST [None]
  - CARDIAC FAILURE [None]
  - COUGH [None]
  - CYANOSIS [None]
  - DIARRHOEA [None]
  - DYSPNOEA [None]
  - DYSPNOEA EXERTIONAL [None]
  - EAR INFECTION [None]
  - EXOSTOSIS [None]
  - FLATULENCE [None]
  - HYPERHIDROSIS [None]
  - HYPERTENSION [None]
  - OEDEMA PERIPHERAL [None]
  - OSTEOARTHRITIS [None]
  - PULMONARY OEDEMA [None]
  - RESPIRATORY DISTRESS [None]
